FAERS Safety Report 19971624 (Version 2)
Quarter: 2021Q4

REPORT INFORMATION
  Report Type: Other
  Country: US (occurrence: US)
  Receive Date: 20211020
  Receipt Date: 20211213
  Transmission Date: 20220303
  Serious: No
  Sender: FDA-Public Use
  Company Number: US-NEUROCRINE BIOSCIENCES INC.-2021NBI05910

PATIENT

DRUGS (20)
  1. INGREZZA [Suspect]
     Active Substance: VALBENAZINE
     Indication: Tardive dyskinesia
     Dosage: 40 MILLIGRAM, QD
     Route: 048
     Dates: start: 20210927, end: 20211005
  2. DEPAKOTE [Concomitant]
     Active Substance: DIVALPROEX SODIUM
     Dosage: 375 MILLIGRAM, QHS(BEDTIME)
     Route: 048
  3. DESYREL [Concomitant]
     Active Substance: TRAZODONE HYDROCHLORIDE
     Dosage: 200 MILLIGRAM, QD (BEDTIME)
     Route: 048
  4. ZYPREXA [Concomitant]
     Active Substance: OLANZAPINE
     Dosage: 10 MILLIGRAM, QD (BEDTIME)
     Route: 048
  5. PERIDEX [CHLORHEXIDINE GLUCONATE] [Concomitant]
     Dosage: UNK
  6. LOTRIMIN [Concomitant]
     Active Substance: CLOTRIMAZOLE
     Dosage: 1 DOSAGE FORM, BID (PRN)
     Route: 061
  7. ESTRACE [Concomitant]
     Active Substance: ESTRADIOL
     Dosage: 0.5 GRAM, QD (EVERY NIGHT FOR 4 WEEKS) INTRAVAGINALY
  8. FLONASE [Concomitant]
     Active Substance: FLUTICASONE PROPIONATE
     Dosage: 100 MICROGRAM, QD(50MCG EACH NOSE)
     Route: 045
  9. VISTARIL [Concomitant]
     Active Substance: HYDROXYZINE PAMOATE
     Indication: Anxiety
     Dosage: 25 MILLIGRAM, QID
     Route: 048
  10. PRILOSEC [Concomitant]
     Active Substance: OMEPRAZOLE MAGNESIUM
     Dosage: 20 MILLIGRAM, QD
     Route: 048
  11. SYSTANE (HYPROMELLOSE 2910 (4000 MPA.S)) [Concomitant]
     Active Substance: HYPROMELLOSE 2910 (4000 MPA.S)
     Indication: Dry eye
     Dosage: 1 GTT DROPS, TID (PRN)
     Route: 047
  12. DELTASONE [Concomitant]
     Active Substance: PREDNISONE
     Dosage: 2 MILLIGRAM
  13. DELTASONE [Concomitant]
     Active Substance: PREDNISONE
     Dosage: 1 MILLIGRAM, EVERY MONTH
  14. BSS [Concomitant]
     Active Substance: CALCIUM CHLORIDE\MAGNESIUM CHLORIDE\POTASSIUM CHLORIDE\SODIUM ACETATE\SODIUM CHLORIDE\SODIUM CITRATE
     Dosage: 30 MILLILITER, PRN
     Route: 047
  15. AVASTIN [Concomitant]
     Active Substance: BEVACIZUMAB
     Dosage: 1.25 MILLIGRAM, PRN
     Route: 031
  16. THERATEARS [Concomitant]
     Active Substance: CARBOXYMETHYLCELLULOSE SODIUM
     Dosage: 1 GTT DROPS, PRN
     Route: 047
  17. BETADINE [Concomitant]
     Active Substance: POVIDONE-IODINE
     Dosage: 1 GTT DROPS, PRN
     Route: 047
  18. ALCAINE [Concomitant]
     Active Substance: PROPARACAINE HYDROCHLORIDE
     Dosage: 1 GTT DROPS, PRN
     Route: 047
  19. ALTACAINE [Concomitant]
     Active Substance: TETRACAINE HYDROCHLORIDE
     Dosage: 1 GTT DROPS, PRN
     Route: 047
  20. WHITE PETROLATUM [Concomitant]
     Active Substance: PETROLATUM
     Dosage: UNK UNK, PRN
     Route: 047

REACTIONS (1)
  - Tremor [Not Recovered/Not Resolved]

NARRATIVE: CASE EVENT DATE: 20210101
